FAERS Safety Report 6357276-3 (Version None)
Quarter: 2009Q3

REPORT INFORMATION
  Report Type: 
  Country: None (occurrence: None)
  Receive Date: 20090916
  Receipt Date: 20090904
  Transmission Date: 20100115
  Serious: Yes (Hospitalization)
  Sender: FDA-Public Use
  Company Number: PHHY2009JP38377

PATIENT
  Age: 60 Year
  Sex: Female

DRUGS (4)
  1. LOCHOL [Suspect]
     Indication: HYPERCHOLESTEROLAEMIA
     Dosage: 30 MG DAILY
     Route: 048
     Dates: start: 20090611, end: 20090615
  2. OLMETEC [Concomitant]
     Dosage: 20 MG, UNK
     Route: 048
     Dates: start: 20080922
  3. SINGULAIR [Concomitant]
     Dosage: 10 MG, UNK
     Route: 048
     Dates: start: 20061008
  4. PULMICORT-100 [Concomitant]
     Dosage: UNK
     Dates: start: 20061212

REACTIONS (4)
  - ABDOMINAL DISTENSION [None]
  - BLOOD CREATINE PHOSPHOKINASE INCREASED [None]
  - HEPATIC FUNCTION ABNORMAL [None]
  - JAUNDICE [None]
